FAERS Safety Report 18338369 (Version 1)
Quarter: 2020Q3

REPORT INFORMATION
  Report Type: Spontaneous
  Country: US (occurrence: US)
  Receive Date: 20200930
  Receipt Date: 20200930
  Transmission Date: 20201103
  Serious: No
  Sender: FDA-Public Use
  Company Number: None

PATIENT
  Age: 61 Year
  Sex: Male
  Weight: 117 kg

DRUGS (1)
  1. ERENUMAB?AOOE (ERENUMAB?AOOE 140MG/ML AUTOINJECTOR, 1ML) [Suspect]
     Active Substance: ERENUMAB-AOOE
     Indication: MIGRAINE
     Route: 058
     Dates: start: 20200507, end: 20200910

REACTIONS (2)
  - Therapy non-responder [None]
  - Constipation [None]

NARRATIVE: CASE EVENT DATE: 20200910
